FAERS Safety Report 5763142-4 (Version None)
Quarter: 2008Q2

REPORT INFORMATION
  Report Type: 
  Country: None (occurrence: None)
  Receive Date: 20080609
  Receipt Date: 20080528
  Transmission Date: 20081010
  Serious: Yes (Other)
  Sender: FDA-Public Use
  Company Number: US-PFIZER INC-2008045770

PATIENT

DRUGS (1)
  1. DEPO-MEDROL [Suspect]

REACTIONS (1)
  - GAIT DISTURBANCE [None]
